FAERS Safety Report 4711176-0 (Version None)
Quarter: 2005Q3

REPORT INFORMATION
  Report Type: 
  Country: None (occurrence: None)
  Receive Date: 20050708
  Receipt Date: 20050629
  Transmission Date: 20060218
  Serious: Yes (Hospitalization)
  Sender: FDA-Public Use
  Company Number: 2005-06-2264

PATIENT
  Sex: Male

DRUGS (2)
  1. VIRAFERONPEG [Suspect]
     Indication: HEPATITIS
     Dosage: SUBCUTANEOUS
     Route: 058
     Dates: start: 20041201, end: 20050614
  2. REBETOL [Suspect]
     Indication: HEPATITIS
     Dosage: ORAL
     Route: 048
     Dates: start: 20041201, end: 20050614

REACTIONS (4)
  - FULL BLOOD COUNT ABNORMAL [None]
  - LEUKOPENIA [None]
  - TESTICULAR NEOPLASM [None]
  - TRANSAMINASES INCREASED [None]
